FAERS Safety Report 14208640 (Version 5)
Quarter: 2018Q2

REPORT INFORMATION
  Report Type: Report from Study
  Country: ES (occurrence: ES)
  Receive Date: 20171121
  Receipt Date: 20180516
  Transmission Date: 20180711
  Serious: Yes (Other)
  Sender: FDA-Public Use
  Company Number: ES-ROCHE-2022656

PATIENT
  Age: 26 Year
  Sex: Female
  Weight: 96.8 kg

DRUGS (11)
  1. FRENADOL (SPAIN) [Concomitant]
     Indication: UPPER RESPIRATORY TRACT INFECTION
     Dosage: DOSE: 1 (OTHER)
     Route: 048
     Dates: start: 20171023, end: 20171029
  2. POLARAMINE [Concomitant]
     Active Substance: DEXCHLORPHENIRAMINE MALEATE
     Indication: ANTIALLERGIC THERAPY
     Dosage: NEXT DOSE RECIEVED ON 14/DEC/2016 AND 24/MAY/2017
     Route: 042
     Dates: start: 20161201
  3. AMOXICILLIN. [Concomitant]
     Active Substance: AMOXICILLIN
     Indication: TONSILLITIS
     Route: 048
     Dates: start: 20170831, end: 20170906
  4. FORTASEC [Concomitant]
     Active Substance: LOPERAMIDE HYDROCHLORIDE
     Indication: DIARRHOEA
     Route: 048
     Dates: start: 201708
  5. METHYLPREDNISOLONE. [Suspect]
     Active Substance: METHYLPREDNISOLONE
     Indication: PREMEDICATION
     Dosage: ONCE BEFORE INFUSION, FURTHE DOSE RECEIVED ON 14/DEC/2016?MOST RECENT DOSE PRIOR TO SAE: 24/MAY/2017
     Route: 042
     Dates: start: 20161201
  6. PARACETAMOL [Concomitant]
     Active Substance: ACETAMINOPHEN
     Indication: PYREXIA
     Dosage: NEXT DOSE RECIEVED ON 14/DEC/2016 AND 24/MAY/2017
     Route: 042
     Dates: start: 20161201
  7. OVOPLEX [Concomitant]
     Active Substance: ETHINYL ESTRADIOL\LEVONORGESTREL
     Indication: PROPHYLAXIS
     Dosage: 1 TABLET
     Route: 065
     Dates: start: 20161223
  8. OCRELIZUMAB. [Suspect]
     Active Substance: OCRELIZUMAB
     Indication: RELAPSING-REMITTING MULTIPLE SCLEROSIS
     Dosage: 300 MG IV INFUSIONS ON DAYS 1 AND 15 FOLLOWED BY ONE 600 MG IV INFUSIONS ADMINISTERED AT WEEKS 24, 4
     Route: 042
     Dates: start: 20161201
  9. IBUPROFEN. [Concomitant]
     Active Substance: IBUPROFEN
     Indication: TONSILLITIS
     Route: 048
     Dates: start: 20170831, end: 20170906
  10. NATALIZUMAB [Concomitant]
     Active Substance: NATALIZUMAB
     Route: 042
     Dates: start: 20180206
  11. PARACETAMOL [Concomitant]
     Active Substance: ACETAMINOPHEN
     Indication: NASOPHARYNGITIS
     Route: 048
     Dates: start: 20180425

REACTIONS (1)
  - Enterocolitis [Recovered/Resolved]

NARRATIVE: CASE EVENT DATE: 201708
